FAERS Safety Report 6091264-X (Version None)
Quarter: 2009Q1

REPORT INFORMATION
  Report Type: 
  Country: None (occurrence: None)
  Receive Date: 20090220
  Receipt Date: 20090220
  Transmission Date: 20090719
  Serious: No
  Sender: FDA-Public Use
  Company Number: None

PATIENT
  Age: 38 Year
  Sex: Female
  Weight: 99.7913 kg

DRUGS (1)
  1. REPLIVA 21/7 [Suspect]
     Indication: ANAEMIA
     Dosage: 1 PILL 1X DAY PO
     Route: 048
     Dates: start: 20090123, end: 20090218

REACTIONS (4)
  - ABDOMINAL PAIN UPPER [None]
  - CONSTIPATION [None]
  - FAECES DISCOLOURED [None]
  - FLATULENCE [None]
